FAERS Safety Report 7123630-5 (Version None)
Quarter: 2010Q4

REPORT INFORMATION
  Report Type: 
  Country: None (occurrence: None)
  Receive Date: 20101125
  Receipt Date: 20101115
  Transmission Date: 20110411
  Serious: Yes (Other)
  Sender: FDA-Public Use
  Company Number: US-SANOFI-AVENTIS-2010SA045483

PATIENT
  Age: 71 Year
  Sex: Female
  Weight: 98 kg

DRUGS (11)
  1. MULTAQ [Suspect]
     Indication: ATRIAL FIBRILLATION
     Route: 048
     Dates: start: 20100709, end: 20100729
  2. COUMADIN [Suspect]
     Route: 048
     Dates: end: 20100706
  3. COUMADIN [Suspect]
     Route: 048
     Dates: start: 20100709
  4. TOPROL-XL [Concomitant]
     Route: 048
  5. CARDIZEM [Concomitant]
     Route: 048
  6. SYNTHROID [Concomitant]
  7. FOLIC ACID [Concomitant]
  8. CRESTOR [Concomitant]
  9. PANTOPRAZOLE [Concomitant]
     Route: 048
  10. ASPIRIN [Concomitant]
     Route: 048
  11. NEURONTIN [Concomitant]
     Route: 048

REACTIONS (2)
  - ABDOMINAL DISCOMFORT [None]
  - INTERNATIONAL NORMALISED RATIO INCREASED [None]
